FAERS Safety Report 7057236 (Version 6)
Quarter: 2014Q2

REPORT INFORMATION
  Report Type: Spontaneous
  Country: US (occurrence: US)
  Receive Date: 20090722
  Receipt Date: 20140407
  Transmission Date: 20141212
  Serious: Yes (Hospitalization, Other)
  Sender: FDA-Public Use
  Company Number: US-ALEXION-A200900565

PATIENT
  Age: 55 Year
  Sex: Male

DRUGS (14)
  1. SOLIRIS [Suspect]
     Indication: PAROXYSMAL NOCTURNAL HAEMOGLOBINURIA
     Dosage: 600 MG, QW X 4
     Route: 042
     Dates: start: 20080814
  2. SOLIRIS [Suspect]
     Dosage: 900 MG, Q2W
     Route: 042
     Dates: start: 20080911
  3. CYCLOSPORIN [Concomitant]
     Indication: APLASTIC ANAEMIA
     Dosage: 25 MG, 2 TABS MORNING AND 6 TABS EVENING
  4. CYCLOSPORIN [Concomitant]
     Dosage: 100 MG, BID (QAM AND QPM)
  5. PENTOXIFYLLINE [Concomitant]
     Indication: APLASTIC ANAEMIA
     Dosage: 400 MG, QD
     Route: 048
  6. PENTOXIFYLLINE [Concomitant]
     Dosage: 400 MG, TID
     Route: 048
  7. PRILOSEC                           /00661201/ [Concomitant]
     Dosage: 20 MG, QD
  8. NEURONTIN [Concomitant]
     Dosage: 300 MG, TID
  9. NEURONTIN [Concomitant]
     Dosage: 600 MG, TID
     Route: 048
  10. FOLIC ACID [Concomitant]
     Dosage: 1 MG, QD
     Route: 048
  11. TYLENOL                            /00020001/ [Concomitant]
     Dosage: 650 MG, 6 HOURS/PRN
  12. SIMETHICONE [Concomitant]
  13. COLACE [Concomitant]
     Dosage: 100 MG, BID
  14. VICODIN [Concomitant]
     Indication: PAIN
     Dosage: UNK, PRN

REACTIONS (26)
  - Transfusion [Unknown]
  - Infection [Recovered/Resolved]
  - Haemoglobin decreased [Unknown]
  - Oedema [Unknown]
  - Cough [Unknown]
  - Fatigue [Unknown]
  - Blood bilirubin increased [Recovering/Resolving]
  - Blood calcium decreased [Recovered/Resolved]
  - Blood glucose increased [Recovered/Resolved]
  - Blood potassium decreased [Recovered/Resolved]
  - Carbon dioxide decreased [Recovered/Resolved]
  - Vitamin B12 increased [Unknown]
  - Urine analysis abnormal [Unknown]
  - Anion gap decreased [Recovered/Resolved]
  - Blood lactate dehydrogenase increased [Unknown]
  - White blood cell count decreased [Unknown]
  - Red blood cell count decreased [Unknown]
  - Lymphocyte count decreased [Unknown]
  - Monocyte count decreased [Unknown]
  - Eosinophil count decreased [Recovered/Resolved]
  - Laboratory test abnormal [Unknown]
  - Platelet count decreased [Unknown]
  - Aspartate aminotransferase increased [Recovered/Resolved]
  - Alanine aminotransferase increased [Recovered/Resolved]
  - Haematocrit decreased [Unknown]
  - Nausea [Unknown]
